FAERS Safety Report 6036978-2 (Version None)
Quarter: 2009Q1

REPORT INFORMATION
  Report Type: 
  Country: None (occurrence: None)
  Receive Date: 20090114
  Receipt Date: 20090106
  Transmission Date: 20090719
  Serious: Yes (Other)
  Sender: FDA-Public Use
  Company Number: HU-AVENTIS-200910234GDDC

PATIENT
  Sex: Female

DRUGS (2)
  1. LANTUS [Suspect]
     Indication: DIABETES MELLITUS
     Route: 058
     Dates: start: 20081201, end: 20081201
  2. APIDRA [Concomitant]
     Indication: DIABETES MELLITUS
     Dosage: DOSE: UNK
     Route: 058
     Dates: start: 20081201, end: 20081201

REACTIONS (3)
  - COMA [None]
  - DIABETIC KETOACIDOSIS [None]
  - DRUG INEFFECTIVE [None]
